FAERS Safety Report 7320260-7 (Version None)
Quarter: 2011Q1

REPORT INFORMATION
  Report Type: 
  Country: None (occurrence: None)
  Receive Date: 20110214
  Receipt Date: 20110131
  Transmission Date: 20110831
  Serious: Yes (Death)
  Sender: FDA-Public Use
  Company Number: 201110083

PATIENT
  Age: 27 Year
  Sex: Male
  Weight: 72.1219 kg

DRUGS (1)
  1. LIORESAL [Suspect]
     Indication: MUSCLE SPASTICITY
     Dosage: 1301.7 MCG, DAILY, INTRATHECAL
     Route: 037

REACTIONS (2)
  - BRONCHOPNEUMONIA [None]
  - QUADRIPLEGIA [None]
